FAERS Safety Report 7266162-6 (Version None)
Quarter: 2011Q1

REPORT INFORMATION
  Report Type: 
  Country: None (occurrence: None)
  Receive Date: 20110131
  Receipt Date: 20101006
  Transmission Date: 20110831
  Serious: No
  Sender: FDA-Public Use
  Company Number: US-ABBOTT-10P-163-0677109-00

PATIENT
  Sex: Male
  Weight: 95.34 kg

DRUGS (6)
  1. PHENOBARBITAL [Concomitant]
     Indication: PRODUCT USED FOR UNKNOWN INDICATION
  2. LUPRON DEPOT [Suspect]
     Indication: PROSTATE CANCER
     Dates: start: 20100726
  3. NORCO [Concomitant]
     Indication: PAIN
  4. MICARDIS [Concomitant]
     Indication: HYPERTENSION
  5. OXYCODONE HCL [Concomitant]
     Indication: PAIN
  6. FLEXERIL [Concomitant]
     Indication: PAIN

REACTIONS (2)
  - HOT FLUSH [None]
  - HYPERTENSION [None]
